FAERS Safety Report 5338364-7 (Version None)
Quarter: 2007Q2

REPORT INFORMATION
  Report Type: 
  Country: None (occurrence: None)
  Receive Date: 20070530
  Receipt Date: 20070521
  Transmission Date: 20071010
  Serious: Yes (Hospitalization)
  Sender: FDA-Public Use
  Company Number: CA-JNJFOC-20061206768

PATIENT
  Sex: Male

DRUGS (6)
  1. REMICADE [Suspect]
     Route: 042
  2. REMICADE [Suspect]
     Indication: CROHN'S DISEASE
     Route: 042
  3. SOLU-MEDROL [Concomitant]
     Indication: PREMEDICATION
     Route: 042
  4. CIPROFLAXACIN [Concomitant]
     Indication: CROHN'S DISEASE
     Dosage: 1MONTH
     Route: 048
  5. IMURAN [Concomitant]
     Dosage: 3 YEARS
     Route: 048
  6. FLAGYL [Concomitant]
     Indication: CROHN'S DISEASE
     Dosage: 1 MONTH
     Route: 048

REACTIONS (3)
  - PAIN [None]
  - PYREXIA [None]
  - WHITE BLOOD CELL COUNT INCREASED [None]
